FAERS Safety Report 19917322 (Version 1)
Quarter: 2021Q4

REPORT INFORMATION
  Report Type: Spontaneous
  Country: US (occurrence: US)
  Receive Date: 20211004
  Receipt Date: 20211004
  Transmission Date: 20220303
  Serious: No
  Sender: FDA-Public Use
  Company Number: US-OTSUKA-2021_017041

PATIENT
  Sex: Female

DRUGS (1)
  1. ABILIFY [Suspect]
     Active Substance: ARIPIPRAZOLE
     Indication: Major depression
     Dosage: 30 MG, QD
     Route: 048
     Dates: start: 202006

REACTIONS (6)
  - Mood altered [Unknown]
  - Hallucination [Unknown]
  - Anxiety [Unknown]
  - Depression [Unknown]
  - Product dose omission issue [Unknown]
  - Drug ineffective [Unknown]
